FAERS Safety Report 15424401 (Version 1)
Quarter: 2018Q3

REPORT INFORMATION
  Report Type: Spontaneous
  Country: DE (occurrence: DE)
  Receive Date: 20180925
  Receipt Date: 20180925
  Transmission Date: 20181010
  Serious: Yes (Hospitalization, Disabling, Other)
  Sender: FDA-Public Use
  Company Number: DE-SA-2018SA144691

PATIENT
  Sex: Female

DRUGS (18)
  1. CLEXANE [Suspect]
     Active Substance: ENOXAPARIN SODIUM
     Dosage: 0.4 ML, QD
     Route: 058
     Dates: start: 20150423, end: 20150525
  2. BELOC ZOK MITE [Concomitant]
     Active Substance: METOPROLOL SUCCINATE
     Dosage: 2*1 TBL
  3. KCL [Concomitant]
     Active Substance: POTASSIUM CHLORIDE
     Dosage: 1 MOL
     Route: 042
  4. BIFITERAL [Concomitant]
     Active Substance: LACTULOSE
     Dosage: 40 ML
  5. NEURO?RATIOPHARM N [Concomitant]
     Dosage: 1*1 TBL
  6. ALDACTONE 50 HCT [Concomitant]
     Dosage: 1*1 TBL
  7. EBRANTIL [URAPIDIL] [Concomitant]
     Dosage: 3*1 TBL
     Route: 048
  8. MULTIBIONTA [ASCORBIC ACID;DEXPANTHENOL;NICOTINAMIDE;PYRIDOXINE HYDROC [Concomitant]
     Dosage: 0.6 ML
  9. DIBENZYRAN [Concomitant]
     Active Substance: PHENOXYBENZAMINE HYDROCHLORIDE
     Dosage: 20 MG
  10. DELIX [PHENYLPROPANOLAMINE HYDROCHLORIDE;PHOLCODINE;PROMETHAZINE HYDRO [Concomitant]
     Dosage: 2*1 TBL
  11. MOVICOL [Concomitant]
     Active Substance: POLYETHYLENE GLYCOL 3350\POTASSIUM CHLORIDE\SODIUM BICARBONATE\SODIUM CHLORIDE
     Dosage: 50 ML
  12. ACC [ACETYLCYSTEINE] [Concomitant]
     Active Substance: ACETYLCYSTEINE
     Dosage: 2 A
     Route: 042
  13. RANITIC [Concomitant]
     Active Substance: RANITIDINE HYDROCHLORIDE
     Dosage: 50 MG
     Route: 042
  14. CLEXANE [Suspect]
     Active Substance: ENOXAPARIN SODIUM
     Indication: PRODUCT USED FOR UNKNOWN INDICATION
     Dosage: UNK
     Route: 058
  15. TOREM [TORASEMIDE SODIUM] [Concomitant]
     Dosage: 1*1 TBL
  16. DOXACOR [Concomitant]
     Dosage: 16 MG
  17. SULFENTANYL [Concomitant]
     Active Substance: SUFENTANIL
     Dosage: 10 UG/ML
     Route: 042
  18. PARACEFAN [Concomitant]
     Active Substance: CLONIDINE
     Dosage: 30 UG/ML
     Route: 042

REACTIONS (5)
  - Aphasia [Unknown]
  - Hypertension [Unknown]
  - Vomiting [Unknown]
  - Dermatitis allergic [Recovering/Resolving]
  - Hemiparesis [Not Recovered/Not Resolved]

NARRATIVE: CASE EVENT DATE: 20150421
